FAERS Safety Report 25664718 (Version 1)
Quarter: 2025Q3

REPORT INFORMATION
  Report Type: Spontaneous
  Country: US (occurrence: None)
  Receive Date: 20250808
  Receipt Date: 20250808
  Transmission Date: 20251021
  Serious: Yes (Disabling)
  Sender: FDA-CTU
  Company Number: None

PATIENT
  Age: 39 Year
  Sex: Female
  Weight: 127.91 kg

DRUGS (1)
  1. SIGNIFOR [Suspect]
     Active Substance: PASIREOTIDE DIASPARTATE
     Indication: Cushing^s syndrome
     Route: 042
     Dates: start: 20250730

REACTIONS (4)
  - Adverse drug reaction [None]
  - Rash macular [None]
  - Injection site reaction [None]
  - Urticaria [None]

NARRATIVE: CASE EVENT DATE: 20250806
